FAERS Safety Report 7222788-7 (Version None)
Quarter: 2011Q1

REPORT INFORMATION
  Report Type: 
  Country: None (occurrence: None)
  Receive Date: 20110112
  Receipt Date: 20110107
  Transmission Date: 20110831
  Serious: Yes (Other)
  Sender: FDA-Public Use
  Company Number: US-AMGEN-USASP2011001074

PATIENT

DRUGS (2)
  1. ENBREL [Suspect]
     Indication: PRODUCT USED FOR UNKNOWN INDICATION
     Dates: start: 20090801, end: 20101201
  2. PLAQUENIL [Concomitant]

REACTIONS (4)
  - RESPIRATORY TRACT CONGESTION [None]
  - FATIGUE [None]
  - DEPRESSION [None]
  - PRURITUS [None]
